FAERS Safety Report 5043117-3 (Version None)
Quarter: 2006Q2

REPORT INFORMATION
  Report Type: 
  Country: None (occurrence: None)
  Receive Date: 20060627
  Receipt Date: 20060612
  Transmission Date: 20061013
  Serious: Yes (Hospitalization)
  Sender: FDA-Public Use
  Company Number: 2006075698

PATIENT
  Age: 35 Year
  Sex: Female

DRUGS (2)
  1. CLINDAMYCIN HCL [Suspect]
     Indication: TOXOPLASMOSIS
     Dosage: DAILY, ORAL
     Route: 048
     Dates: start: 20060419, end: 20060423
  2. VALPROIC ACID [Concomitant]

REACTIONS (3)
  - CHOLESTASIS [None]
  - LEUKOCYTOCLASTIC VASCULITIS [None]
  - PANCREATITIS ACUTE [None]
